FAERS Safety Report 17586015 (Version 1)
Quarter: 2020Q1

REPORT INFORMATION
  Report Type: Report from Study
  Country: US (occurrence: US)
  Receive Date: 20200326
  Receipt Date: 20200326
  Transmission Date: 20200409
  Serious: Yes (Death, Hospitalization, Other)
  Sender: FDA-Public Use
  Company Number: US-UCBSA-2020010604

PATIENT
  Age: 71 Year
  Sex: Male

DRUGS (2)
  1. LACOSAMIDE. [Suspect]
     Active Substance: LACOSAMIDE
     Indication: SEIZURE
     Dosage: 100 MG ONE TABLET IN THE AM AND 1.5 TABLET IN THE PM, 2X/DAY (BID)
  2. LACOSAMIDE. [Suspect]
     Active Substance: LACOSAMIDE
     Indication: EPILEPSY

REACTIONS (4)
  - Pleural effusion [Not Recovered/Not Resolved]
  - Prostate cancer [Not Recovered/Not Resolved]
  - Off label use [Unknown]
  - Death [Fatal]

NARRATIVE: CASE EVENT DATE: 20190204
